FAERS Safety Report 11724095 (Version 1)
Quarter: 2015Q4

REPORT INFORMATION
  Report Type: Spontaneous
  Country: BR (occurrence: BR)
  Receive Date: 20151111
  Receipt Date: 20151111
  Transmission Date: 20160304
  Serious: Yes (Other)
  Sender: FDA-Public Use
  Company Number: BR-ELI_LILLY_AND_COMPANY-BR201511000452

PATIENT
  Sex: Male

DRUGS (1)
  1. HUMULIN N [Suspect]
     Active Substance: INSULIN HUMAN
     Indication: PRODUCT USED FOR UNKNOWN INDICATION
     Dosage: UNK, UNKNOWN
     Route: 065
     Dates: start: 2012

REACTIONS (8)
  - Drug ineffective [Unknown]
  - Hallucination [Unknown]
  - Asthenia [Unknown]
  - Pain [Unknown]
  - Suspected counterfeit product [Unknown]
  - Blood glucose increased [Not Recovered/Not Resolved]
  - Root canal infection [Unknown]
  - Ocular vascular disorder [Unknown]
